FAERS Safety Report 13715616 (Version 1)
Quarter: 2017Q3

REPORT INFORMATION
  Report Type: Spontaneous
  Country: US (occurrence: US)
  Receive Date: 20170705
  Receipt Date: 20170705
  Transmission Date: 20171127
  Serious: No
  Sender: FDA-Public Use
  Company Number: US-BIOGEN-2017BI00426382

PATIENT
  Age: 54 Year
  Sex: Female

DRUGS (1)
  1. TYSABRI [Suspect]
     Active Substance: NATALIZUMAB
     Indication: MULTIPLE SCLEROSIS
     Route: 065

REACTIONS (5)
  - Cognitive disorder [Not Recovered/Not Resolved]
  - Hypersomnia [Unknown]
  - Fall [Recovered/Resolved]
  - Skin abrasion [Recovered/Resolved]
  - Multiple sclerosis relapse [Unknown]
